FAERS Safety Report 15532603 (Version 2)
Quarter: 2019Q2

REPORT INFORMATION
  Report Type: Spontaneous
  Country: US (occurrence: US)
  Receive Date: 20181019
  Receipt Date: 20190606
  Transmission Date: 20190711
  Serious: Yes (Other)
  Sender: FDA-Public Use
  Company Number: US-ASTRAZENECA-2018SF35769

PATIENT
  Age: 20739 Day
  Sex: Male
  Weight: 74.8 kg

DRUGS (36)
  1. CYCLOBENZAPRINE. [Concomitant]
     Active Substance: CYCLOBENZAPRINE
  2. GLIPIZIDE ER [Concomitant]
     Active Substance: GLIPIZIDE
  3. LIPOFEN [Concomitant]
     Active Substance: FENOFIBRATE
  4. LOTREL [Concomitant]
     Active Substance: AMLODIPINE BESYLATE\BENAZEPRIL HYDROCHLORIDE
  5. TRICOR [Concomitant]
     Active Substance: FENOFIBRATE
  6. VIAGRA [Concomitant]
     Active Substance: SILDENAFIL CITRATE
  7. FUROSEMIDE. [Concomitant]
     Active Substance: FUROSEMIDE
  8. METOPROLOL. [Concomitant]
     Active Substance: METOPROLOL
  9. NAPROXEN. [Concomitant]
     Active Substance: NAPROXEN
  10. NIFEDIPINE. [Concomitant]
     Active Substance: NIFEDIPINE
  11. PREDNISONE. [Concomitant]
     Active Substance: PREDNISONE
  12. NEXIUM [Suspect]
     Active Substance: ESOMEPRAZOLE MAGNESIUM
     Route: 048
     Dates: start: 2006, end: 2017
  13. NEXIUM [Suspect]
     Active Substance: ESOMEPRAZOLE MAGNESIUM
     Route: 048
     Dates: start: 2006, end: 2016
  14. AZITHROMYCIN ANHYDROUS. [Concomitant]
     Active Substance: AZITHROMYCIN ANHYDROUS
  15. IBUPROFEN. [Concomitant]
     Active Substance: IBUPROFEN
  16. METFORMIN [Concomitant]
     Active Substance: METFORMIN HYDROCHLORIDE
  17. OXYCODONE [Concomitant]
     Active Substance: OXYCODONE
  18. ZOLPIDEM [Concomitant]
     Active Substance: ZOLPIDEM\ZOLPIDEM TARTRATE
  19. NEXIUM [Suspect]
     Active Substance: ESOMEPRAZOLE MAGNESIUM
     Dosage: GENRIC
     Route: 048
     Dates: start: 2015
  20. AMOXICILLIN. [Concomitant]
     Active Substance: AMOXICILLIN
  21. ATORVASTATIN [Concomitant]
     Active Substance: ATORVASTATIN
  22. FENOFIBRATE. [Concomitant]
     Active Substance: FENOFIBRATE
  23. HYDROCODONE BITARTRATE AND ACETAMINOPHEN [Concomitant]
     Active Substance: ACETAMINOPHEN\HYDROCODONE BITARTRATE
  24. ALLOPURINOL. [Concomitant]
     Active Substance: ALLOPURINOL
  25. BENZONATATE. [Concomitant]
     Active Substance: BENZONATATE
  26. LOVAZA [Concomitant]
     Active Substance: OMEGA-3-ACID ETHYL ESTERS
  27. TOPROL XL [Concomitant]
     Active Substance: METOPROLOL SUCCINATE
  28. CIPROFLOXACIN. [Concomitant]
     Active Substance: CIPROFLOXACIN
  29. RANITIDINE. [Concomitant]
     Active Substance: RANITIDINE
  30. PIOGLITAZONE. [Concomitant]
     Active Substance: PIOGLITAZONE
  31. JANUVIA [Concomitant]
     Active Substance: SITAGLIPTIN PHOSPHATE
  32. LEVOFLOXACIN. [Concomitant]
     Active Substance: LEVOFLOXACIN
  33. TRAMADOL. [Concomitant]
     Active Substance: TRAMADOL
  34. VENTOLIN HFA [Concomitant]
     Active Substance: ALBUTEROL SULFATE
  35. GEMFIBROZIL. [Concomitant]
     Active Substance: GEMFIBROZIL
  36. PIOGLITAZONE. [Concomitant]
     Active Substance: PIOGLITAZONE

REACTIONS (3)
  - Renal failure [Not Recovered/Not Resolved]
  - Tubulointerstitial nephritis [Unknown]
  - Chronic kidney disease [Not Recovered/Not Resolved]

NARRATIVE: CASE EVENT DATE: 20100927
